FAERS Safety Report 24765420 (Version 2)
Quarter: 2024Q4

REPORT INFORMATION
  Report Type: Spontaneous
  Country: TN (occurrence: TN)
  Receive Date: 20241223
  Receipt Date: 20241226
  Transmission Date: 20250115
  Serious: Yes (Other)
  Sender: ACCORD
  Company Number: TN-MLMSERVICE-20241205-PI279322-00218-1

PATIENT
  Age: 82 Year
  Sex: Male

DRUGS (2)
  1. METHOTREXATE [Suspect]
     Active Substance: METHOTREXATE
     Indication: Psoriasis
  2. METHOTREXATE [Suspect]
     Active Substance: METHOTREXATE
     Indication: Psoriasis
     Dosage: FIVE TABLETS EVERY TWO DAYS

REACTIONS (5)
  - Mucocutaneous ulceration [Recovered/Resolved]
  - Bicytopenia [Recovered/Resolved]
  - Incorrect dose administered [Unknown]
  - Product selection error [Unknown]
  - Self-medication [Unknown]
